FAERS Safety Report 15201880 (Version 5)
Quarter: 2018Q4

REPORT INFORMATION
  Report Type: Report from Study
  Country: AR (occurrence: AR)
  Receive Date: 20180726
  Receipt Date: 20181005
  Transmission Date: 20190204
  Serious: Yes (Life-Threatening, Hospitalization, Other)
  Sender: FDA-Public Use
  Company Number: PHHY2018AR003041

PATIENT
  Age: 75 Year
  Sex: Female

DRUGS (7)
  1. EPAMIN [Concomitant]
     Active Substance: PHENYTOIN SODIUM
     Indication: SEIZURE
     Dosage: 1 DF, Q8H (3 PER DAY)
     Route: 065
  2. WARFARIN [Concomitant]
     Active Substance: WARFARIN
     Indication: PRODUCT USED FOR UNKNOWN INDICATION
     Route: 065
  3. EXEMESTANE. [Concomitant]
     Active Substance: EXEMESTANE
     Indication: PRODUCT USED FOR UNKNOWN INDICATION
     Dosage: 0.5 DF, QD
     Route: 065
  4. VITAMIN D [Concomitant]
     Active Substance: CHOLECALCIFEROL
     Indication: OSTEOPENIA
     Dosage: 1 DF, Q2W (EVERY 15 DAYS)
     Route: 065
  5. ENALAPRIL D [Concomitant]
     Indication: PRODUCT USED FOR UNKNOWN INDICATION
     Route: 065
  6. AFINITOR [Suspect]
     Active Substance: EVEROLIMUS
     Indication: BREAST CANCER
     Dosage: 10 MG, QD
     Route: 065
     Dates: start: 20180226, end: 20180702
  7. VITAMIN D [Concomitant]
     Active Substance: CHOLECALCIFEROL
     Dosage: 1 DF, QW
     Route: 065

REACTIONS (39)
  - Feeling abnormal [Unknown]
  - Hypertension [Recovered/Resolved]
  - Limb injury [Recovering/Resolving]
  - Alopecia [Recovering/Resolving]
  - Vitamin B2 deficiency [Recovering/Resolving]
  - Depression [Unknown]
  - Bone marrow oedema [Unknown]
  - Pruritus [Recovering/Resolving]
  - Tongue ulceration [Recovering/Resolving]
  - Swelling [Unknown]
  - Fall [Recovering/Resolving]
  - Sciatic nerve injury [Recovering/Resolving]
  - Urticaria [Recovering/Resolving]
  - Fungal infection [Recovered/Resolved]
  - Malaise [Recovering/Resolving]
  - Spinal column injury [Recovering/Resolving]
  - Bone fissure [Unknown]
  - Skin discolouration [Unknown]
  - Diarrhoea [Unknown]
  - Blood lactate dehydrogenase increased [Unknown]
  - Coma [Unknown]
  - Peripheral swelling [Recovering/Resolving]
  - Hypersensitivity [Recovering/Resolving]
  - Anxiety [Unknown]
  - Visual impairment [Recovering/Resolving]
  - Nail disorder [Recovering/Resolving]
  - Skin ulcer [Not Recovered/Not Resolved]
  - Eating disorder [Recovering/Resolving]
  - Arthropod bite [Unknown]
  - Muscle spasms [Unknown]
  - Loss of consciousness [Recovering/Resolving]
  - Seizure [Recovering/Resolving]
  - Infection [Recovering/Resolving]
  - Pain in extremity [Unknown]
  - Listless [Unknown]
  - Ear pain [Recovering/Resolving]
  - Dysgeusia [Recovering/Resolving]
  - Arthralgia [Unknown]
  - Blood potassium decreased [Unknown]

NARRATIVE: CASE EVENT DATE: 201807
